FAERS Safety Report 15551766 (Version 3)
Quarter: 2018Q4

REPORT INFORMATION
  Report Type: Report from Study
  Country: DK (occurrence: DK)
  Receive Date: 20181025
  Receipt Date: 20181105
  Transmission Date: 20190205
  Serious: Yes (Life-Threatening, Hospitalization, Other)
  Sender: FDA-Public Use
  Company Number: DK-CELGENEUS-DNK-20181007115

PATIENT
  Age: 67 Year
  Sex: Female
  Weight: 65.7 kg

DRUGS (11)
  1. LEVOTHYROXINE. [Concomitant]
     Active Substance: LEVOTHYROXINE
     Indication: METABOLIC DISORDER
     Dosage: 100 MICROGRAM
     Route: 048
     Dates: start: 20180404
  2. TIMOLO [Concomitant]
     Indication: CATARACT
     Dosage: 1 DROPS
     Route: 047
     Dates: start: 20180404, end: 20181028
  3. GEMCITABINE [Suspect]
     Active Substance: GEMCITABINE\GEMCITABINE HYDROCHLORIDE
     Indication: PANCREATIC CARCINOMA METASTATIC
     Route: 065
     Dates: start: 20181001
  4. MORPHINE [Suspect]
     Active Substance: MORPHINE
     Route: 058
     Dates: start: 20181020, end: 20181025
  5. ELTROXIN [Concomitant]
     Active Substance: LEVOTHYROXINE
     Indication: MYXOEDEMA
     Dosage: 100 MICROGRAM
     Route: 048
     Dates: start: 20180404
  6. ABRAXANE [Suspect]
     Active Substance: PACLITAXEL
     Indication: PANCREATIC CARCINOMA METASTATIC
     Route: 041
     Dates: start: 20181001
  7. TINZAPARIN [Concomitant]
     Active Substance: TINZAPARIN
     Indication: THROMBOSIS
     Dosage: 12000 IE
     Route: 041
     Dates: start: 20180806
  8. TOCILIZUMAB. [Suspect]
     Active Substance: TOCILIZUMAB
     Indication: PANCREATIC CARCINOMA METASTATIC
     Route: 065
     Dates: end: 20180924
  9. TIMOLO [Concomitant]
     Indication: GLAUCOMA
     Dosage: 1 DROPS
     Route: 047
     Dates: start: 2017
  10. MORPHINE [Suspect]
     Active Substance: MORPHINE
     Indication: PAIN
     Dosage: 30 MILLIGRAM
     Route: 048
     Dates: start: 20180417, end: 20181020
  11. MORPHINE [Suspect]
     Active Substance: MORPHINE
     Dosage: 5-10 MG
     Route: 058
     Dates: start: 20181025, end: 20181028

REACTIONS (2)
  - Constipation [Not Recovered/Not Resolved]
  - Hepatic failure [Not Recovered/Not Resolved]

NARRATIVE: CASE EVENT DATE: 20181018
